FAERS Safety Report 8187010-6 (Version None)
Quarter: 2012Q1

REPORT INFORMATION
  Report Type: 
  Country: None (occurrence: None)
  Receive Date: 20120306
  Receipt Date: 20120223
  Transmission Date: 20120608
  Serious: Yes (Death)
  Sender: FDA-Public Use
  Company Number: JP-PFIZER INC-2012055229

PATIENT
  Age: 55 Year
  Sex: Female

DRUGS (2)
  1. IRINOTECAN HCL [Suspect]
     Indication: CERVIX CARCINOMA
     Dosage: 70 MG/BODY
     Route: 041
     Dates: start: 20120209, end: 20120209
  2. ETOPOSIDE [Concomitant]
     Indication: CERVIX CARCINOMA
     Dosage: 50 MG/BODY DAILY
     Route: 048
     Dates: start: 20120209, end: 20120215

REACTIONS (3)
  - FEBRILE NEUTROPENIA [None]
  - DIARRHOEA [None]
  - DISSEMINATED INTRAVASCULAR COAGULATION [None]
